FAERS Safety Report 9211102 (Version 1)
Quarter: 2013Q2

REPORT INFORMATION
  Report Type: Spontaneous
  Country: US (occurrence: US)
  Receive Date: 20130404
  Receipt Date: 20130404
  Transmission Date: 20140414
  Serious: Yes (Hospitalization, Other)
  Sender: FDA-Public Use
  Company Number: US-ACTAVIS-2013-05562

PATIENT
  Age: 67 Year
  Sex: Female

DRUGS (1)
  1. ACETAMINOPHEN [Suspect]
     Indication: PRODUCT USED FOR UNKNOWN INDICATION
     Dosage: 1000 MG, Q6H
     Route: 048

REACTIONS (2)
  - Metabolic acidosis [Recovered/Resolved]
  - Confusional state [Recovered/Resolved]
